FAERS Safety Report 6113033-4 (Version None)
Quarter: 2009Q1

REPORT INFORMATION
  Report Type: 
  Country: None (occurrence: None)
  Receive Date: 20090312
  Receipt Date: 20090306
  Transmission Date: 20090719
  Serious: Yes (Hospitalization)
  Sender: FDA-Public Use
  Company Number: B0564513A

PATIENT
  Age: 38 Year
  Sex: Female

DRUGS (3)
  1. AUGMENTIN '125' [Suspect]
     Route: 048
     Dates: start: 20080818, end: 20080828
  2. LAMPIT [Suspect]
     Indication: AMERICAN TRYPANOSOMIASIS
     Dosage: 10MGK PER DAY
     Route: 048
     Dates: start: 20080806, end: 20080902
  3. VIBRAMYCIN [Suspect]
     Route: 048
     Dates: start: 20080818, end: 20080828

REACTIONS (15)
  - ALANINE AMINOTRANSFERASE INCREASED [None]
  - ASPARTATE AMINOTRANSFERASE INCREASED [None]
  - BLOOD ALKALINE PHOSPHATASE INCREASED [None]
  - DIARRHOEA [None]
  - DRUG RASH WITH EOSINOPHILIA AND SYSTEMIC SYMPTOMS [None]
  - DYSPNOEA [None]
  - EOSINOPHILIA [None]
  - GAMMA-GLUTAMYLTRANSFERASE INCREASED [None]
  - HEPATOCELLULAR INJURY [None]
  - LEUKOCYTOSIS [None]
  - NAUSEA [None]
  - PYREXIA [None]
  - RASH MACULO-PAPULAR [None]
  - VOMITING [None]
  - WHITE BLOOD CELL COUNT DECREASED [None]
